FAERS Safety Report 7997947 (Version 3)
Quarter: 2013Q2

REPORT INFORMATION
  Report Type: Report from Study
  Country: MX (occurrence: MX)
  Receive Date: 20110620
  Receipt Date: 20130606
  Transmission Date: 20140414
  Serious: Yes (Other)
  Sender: FDA-Public Use
  Company Number: PHHY2011MX49769

PATIENT
  Age: 66 Year
  Sex: Female

DRUGS (4)
  1. RASILEZ HCT [Suspect]
     Indication: HYPERTENSION
     Dosage: 2 DF (150/12.5MG), UNK
     Route: 048
     Dates: start: 20110201, end: 20110302
  2. TEPRA [Concomitant]
     Indication: CARDIOVASCULAR DISORDER
     Dosage: 1 DF, UNK
  3. PLAVIX [Concomitant]
     Indication: CARDIOVASCULAR DISORDER
     Dosage: 1 DF, UNK
     Route: 048
     Dates: start: 200911
  4. CO-DIOVAN [Concomitant]
     Dosage: UNK UKN, UNK
     Dates: start: 20110302

REACTIONS (2)
  - Gastritis [Unknown]
  - Dyspepsia [Unknown]
